FAERS Safety Report 18266252 (Version 7)
Quarter: 2022Q2

REPORT INFORMATION
  Report Type: Other
  Country: US (occurrence: US)
  Receive Date: 20200915
  Receipt Date: 20220516
  Transmission Date: 20220721
  Serious: No
  Sender: FDA-Public Use
  Company Number: US-TOLMAR, INC.-20US022653

PATIENT
  Sex: Male

DRUGS (7)
  1. ELIGARD [Suspect]
     Active Substance: LEUPROLIDE ACETATE
     Indication: Product used for unknown indication
     Dosage: 45 MG, TWICE YEARLY
  2. XTANDI [Suspect]
     Active Substance: ENZALUTAMIDE
     Indication: Prostate cancer
     Dosage: 160 MG, QD
     Route: 048
     Dates: start: 20200114
  3. XTANDI [Suspect]
     Active Substance: ENZALUTAMIDE
     Dosage: 120 MG, QD
     Route: 048
     Dates: start: 20200215
  4. XTANDI [Suspect]
     Active Substance: ENZALUTAMIDE
     Dosage: 160 MG, QD
     Route: 048
  5. XTANDI [Suspect]
     Active Substance: ENZALUTAMIDE
     Dosage: 120 MG, QD
     Route: 048
  6. XTANDI [Suspect]
     Active Substance: ENZALUTAMIDE
     Dosage: 120 MG, QD
     Route: 048
     Dates: start: 20200116
  7. PROVENGE [Concomitant]
     Active Substance: SIPULEUCEL-T
     Indication: Product used for unknown indication
     Dosage: UNK

REACTIONS (10)
  - Paraesthesia [Not Recovered/Not Resolved]
  - Skin lesion [Not Recovered/Not Resolved]
  - Visual impairment [Not Recovered/Not Resolved]
  - Diplopia [Not Recovered/Not Resolved]
  - Hypoaesthesia [Not Recovered/Not Resolved]
  - Night sweats [Not Recovered/Not Resolved]
  - Condition aggravated [Not Recovered/Not Resolved]
  - Hot flush [Not Recovered/Not Resolved]
  - Myalgia [Not Recovered/Not Resolved]
  - Arthralgia [Not Recovered/Not Resolved]

NARRATIVE: CASE EVENT DATE: 20200101
